FAERS Safety Report 8361270-0 (Version None)
Quarter: 2012Q2

REPORT INFORMATION
  Report Type: 
  Country: None (occurrence: None)
  Receive Date: 20120515
  Receipt Date: 20120504
  Transmission Date: 20120825
  Serious: Yes (Other)
  Sender: FDA-Public Use
  Company Number: IN-MERCK-1205USA00945

PATIENT
  Age: 77 Year

DRUGS (5)
  1. GLYCOMET [Concomitant]
     Route: 065
  2. NEUROBION [Concomitant]
     Route: 065
  3. JANUVIA [Suspect]
     Route: 048
  4. UNIMAX [Concomitant]
     Route: 065
  5. TELMA [Concomitant]
     Route: 065

REACTIONS (2)
  - ADENOCARCINOMA PANCREAS [None]
  - HEPATIC INFECTION [None]
